FAERS Safety Report 21096444 (Version 2)
Quarter: 2022Q3

REPORT INFORMATION
  Report Type: Spontaneous
  Country: JP (occurrence: JP)
  Receive Date: 20220718
  Receipt Date: 20220722
  Transmission Date: 20221026
  Serious: Yes (Hospitalization)
  Sender: FDA-Public Use
  Company Number: JP-BAYER-2022A094985

PATIENT
  Age: 8 Decade

DRUGS (1)
  1. CIPROFLOXACIN [Suspect]
     Active Substance: CIPROFLOXACIN
     Indication: Urinary tract infection
     Dosage: 400MG TWICE
     Route: 048
     Dates: start: 20220704, end: 20220706

REACTIONS (2)
  - Intestinal obstruction [None]
  - Nausea [None]

NARRATIVE: CASE EVENT DATE: 20220704
